FAERS Safety Report 7096989-5 (Version None)
Quarter: 2010Q4

REPORT INFORMATION
  Report Type: 
  Country: None (occurrence: None)
  Receive Date: 20101111
  Receipt Date: 20101104
  Transmission Date: 20110411
  Serious: Yes (Other)
  Sender: FDA-Public Use
  Company Number: US-AMGEN INC.-QUU444333

PATIENT

DRUGS (2)
  1. NPLATE [Suspect]
     Indication: MYELODYSPLASTIC SYNDROME
     Dosage: 65 A?G, UNK
     Dates: end: 20100804
  2. NPLATE [Suspect]
     Dates: end: 20100804

REACTIONS (1)
  - DRUG INEFFECTIVE [None]
